FAERS Safety Report 12359302 (Version 1)
Quarter: 2016Q2

REPORT INFORMATION
  Report Type: Spontaneous
  Country: US (occurrence: None)
  Receive Date: 20160511
  Receipt Date: 20160511
  Transmission Date: 20160815
  Serious: No
  Sender: FDA-Public Use
  Company Number: None

PATIENT
  Age: 25 Year
  Sex: Female
  Weight: 63.78 kg

DRUGS (1)
  1. COPPER T IUD [Suspect]
     Active Substance: COPPER\INTRAUTERINE DEVICE
     Indication: CONTRACEPTION

REACTIONS (2)
  - Pelvic pain [None]
  - Device dislocation [None]

NARRATIVE: CASE EVENT DATE: 20160502
